FAERS Safety Report 13272511 (Version 1)
Quarter: 2017Q1

REPORT INFORMATION
  Report Type: Spontaneous
  Country: US (occurrence: US)
  Receive Date: 20170226
  Receipt Date: 20170226
  Transmission Date: 20170428
  Serious: Yes (Other)
  Sender: FDA-Public Use
  Company Number: None

PATIENT
  Age: 56 Year
  Sex: Male
  Weight: 101.2 kg

DRUGS (3)
  1. ASPERIN [Concomitant]
  2. EFFEXOR XR EXTENDED-RELEASE [Suspect]
     Active Substance: VENLAFAXINE HYDROCHLORIDE
     Indication: DEPRESSION
     Dosage: ?          QUANTITY:1 CAPSULE(S);?
     Route: 048
  3. MET FOR MEN [Concomitant]

REACTIONS (4)
  - Hypersomnia [None]
  - Cognitive disorder [None]
  - Hyperhidrosis [None]
  - Abnormal dreams [None]

NARRATIVE: CASE EVENT DATE: 20150210
